FAERS Safety Report 6154231-3 (Version None)
Quarter: 2009Q2

REPORT INFORMATION
  Report Type: 
  Country: None (occurrence: None)
  Receive Date: 20090414
  Receipt Date: 20090331
  Transmission Date: 20091009
  Serious: Yes (Other)
  Sender: FDA-Public Use
  Company Number: US-AVENTIS-200913050US

PATIENT
  Age: 33 Year
  Sex: Female

DRUGS (3)
  1. LANTUS [Suspect]
     Route: 058
     Dates: start: 20090301, end: 20090329
  2. APIDRA [Suspect]
     Dosage: DOSE: UNK
     Route: 058
     Dates: start: 20090330
  3. OPTICLIK GREY [Suspect]
     Dates: start: 20090330

REACTIONS (2)
  - BLOOD GLUCOSE INCREASED [None]
  - VISION BLURRED [None]
